FAERS Safety Report 5191173-4 (Version None)
Quarter: 2006Q4

REPORT INFORMATION
  Report Type: 
  Country: None (occurrence: None)
  Receive Date: 20061220
  Receipt Date: 20061220
  Transmission Date: 20070319
  Serious: Yes (Hospitalization)
  Sender: FDA-Public Use
  Company Number: None

PATIENT
  Age: 62 Year
  Sex: Male
  Weight: 39.5537 kg

DRUGS (12)
  1. IMIPENEM [Suspect]
     Indication: PELVIC ABSCESS
     Dosage: 500 MG IV Q6H
     Route: 042
     Dates: start: 20060718, end: 20060722
  2. IMIPENEM [Suspect]
     Indication: PSEUDOMONAS INFECTION
     Dosage: 500 MG IV Q6H
     Route: 042
     Dates: start: 20060718, end: 20060722
  3. VIT C [Concomitant]
  4. HEPARIN [Concomitant]
  5. MAG OX [Concomitant]
  6. METHADONE HCL [Concomitant]
  7. METOPROLOL SUCCINATE [Concomitant]
  8. MICONAZOLE [Concomitant]
  9. PANTOPRAZOLE SODIUM [Concomitant]
  10. ACCUZYME [Concomitant]
  11. POTASSIUM ACETATE [Concomitant]
  12. SODIUM BICARB [Concomitant]

REACTIONS (1)
  - CONVULSION [None]
